FAERS Safety Report 25712186 (Version 2)
Quarter: 2025Q3

REPORT INFORMATION
  Report Type: Spontaneous
  Country: US (occurrence: US)
  Receive Date: 20250821
  Receipt Date: 20250922
  Transmission Date: 20251020
  Serious: No
  Sender: ROCHE
  Company Number: US-ROCHE-10000364083

PATIENT
  Age: 75 Year
  Sex: Female
  Weight: 79.83 kg

DRUGS (6)
  1. ACTEMRA [Suspect]
     Active Substance: TOCILIZUMAB
     Indication: Giant cell arteritis
     Route: 058
     Dates: start: 20250606
  2. PREDNISONE [Concomitant]
     Active Substance: PREDNISONE
     Indication: Giant cell arteritis
     Dosage: DOSAGE VARIES - CURRENTLY 15MG PER DAY
     Dates: start: 202505
  3. VITAMIN D3 [Concomitant]
     Active Substance: CHOLECALCIFEROL
     Dates: start: 202505
  4. DORZOLAMIDE [Concomitant]
     Active Substance: DORZOLAMIDE
     Indication: Giant cell arteritis
     Dosage: 2% SOLUTION, GIVES DROPS IN BOTH EYES
     Route: 047
     Dates: start: 202506
  5. TIMOLOL [TIMOLOL MALEATE] [Concomitant]
     Indication: Giant cell arteritis
     Dosage: 0.5% SOLUTION, GIVES DROPS IN BOTH EYES
     Route: 047
     Dates: start: 202506
  6. OZEMPIC [Concomitant]
     Active Substance: SEMAGLUTIDE
     Indication: Weight decreased
     Dates: start: 2025

REACTIONS (5)
  - Product dose omission issue [Unknown]
  - Headache [Not Recovered/Not Resolved]
  - Device use error [Unknown]
  - Device malfunction [Unknown]
  - Device issue [Unknown]

NARRATIVE: CASE EVENT DATE: 20250701
